FAERS Safety Report 7093606-5 (Version None)
Quarter: 2010Q4

REPORT INFORMATION
  Report Type: 
  Country: None (occurrence: None)
  Receive Date: 20101110
  Receipt Date: 20091016
  Transmission Date: 20110411
  Serious: No
  Sender: FDA-Public Use
  Company Number: US-KINGPHARMUSA00001-K200901309

PATIENT
  Sex: Female

DRUGS (4)
  1. EPIPEN JR. [Suspect]
     Dosage: 0.15 MG, SINGLE
     Dates: start: 20091016, end: 20091016
  2. CYTOMEL [Concomitant]
     Dosage: 25 MG, QD
  3. SYNTHROID [Concomitant]
     Dosage: 100 MCG, QD
  4. DICLOFENAC SODIUM [Concomitant]
     Indication: ARTHRITIS
     Dosage: 75 MG, BID

REACTIONS (5)
  - ACCIDENTAL EXPOSURE [None]
  - EXPIRED DRUG ADMINISTERED [None]
  - INJECTION SITE HAEMATOMA [None]
  - INJECTION SITE PAIN [None]
  - INJECTION SITE SWELLING [None]
